FAERS Safety Report 5351448-2 (Version None)
Quarter: 2007Q2

REPORT INFORMATION
  Report Type: 
  Country: None (occurrence: None)
  Receive Date: 20070521
  Receipt Date: 20070319
  Transmission Date: 20071010
  Serious: No
  Sender: FDA-Public Use
  Company Number: WAES 0612USA03658

PATIENT
  Age: 55 Year
  Sex: Male
  Weight: 99.7913 kg

DRUGS (3)
  1. JANUVIA [Suspect]
     Indication: DIABETES MELLITUS
     Dosage: 100 MG/DAILY/PO
     Route: 048
     Dates: start: 20061126, end: 20061217
  2. GLUCOPHAGE [Concomitant]
  3. TARKA [Concomitant]

REACTIONS (2)
  - CHEST PAIN [None]
  - DYSPEPSIA [None]
